FAERS Safety Report 21120524 (Version 2)
Quarter: 2022Q3

REPORT INFORMATION
  Report Type: Spontaneous
  Country: US (occurrence: US)
  Receive Date: 20220722
  Receipt Date: 20220912
  Transmission Date: 20221027
  Serious: No
  Sender: FDA-Public Use
  Company Number: US-PFIZER INC-202200996142

PATIENT
  Age: 68 Year
  Sex: Female
  Weight: 57.61 kg

DRUGS (2)
  1. PAXLOVID [Suspect]
     Active Substance: NIRMATRELVIR\RITONAVIR
     Indication: COVID-19 treatment
     Dosage: [PF-07321332 300 MG]/[RITONAVIR 100 MG]; EVERY 12 HOURS
     Dates: start: 20220711, end: 20220712
  2. ACYCLOVIR [Concomitant]
     Active Substance: ACYCLOVIR
     Indication: Leukaemia
     Dosage: UNK

REACTIONS (4)
  - Emotional disorder [Recovered/Resolved]
  - Crying [Recovered/Resolved]
  - Dysgeusia [Recovered/Resolved]
  - Nausea [Recovered/Resolved]

NARRATIVE: CASE EVENT DATE: 20220711
